FAERS Safety Report 15389703 (Version 7)
Quarter: 2020Q2

REPORT INFORMATION
  Report Type: Report from Study
  Country: None (occurrence: JP)
  Receive Date: 20180917
  Receipt Date: 20200624
  Transmission Date: 20200713
  Serious: Yes (Life-Threatening, Hospitalization, Other)
  Sender: FDA-Public Use
  Company Number: JP-ABBVIE-18S-087-2485743-00

PATIENT
  Age: 72 Year
  Sex: Female
  Weight: 43 kg

DRUGS (19)
  1. DUODOPA [Suspect]
     Active Substance: CARBIDOPA\LEVODOPA
     Indication: PARKINSON^S DISEASE
     Dosage: MD: 4 ML, CD: 3.3 ML/HR X 16 HR, ED: 1 ML/UNIT X2
     Route: 050
     Dates: start: 20170808, end: 20170815
  2. DUODOPA [Suspect]
     Active Substance: CARBIDOPA\LEVODOPA
     Dosage: MD: 6 ML?CD: 2.9 ML/HR ? 16 HRS?ED: 1.2 ML/UNIT ? 5
     Route: 050
     Dates: start: 20171129, end: 20181214
  3. WARFARIN POTASSIUM [Suspect]
     Active Substance: WARFARIN POTASSIUM
     Route: 048
     Dates: start: 20191005, end: 20200107
  4. ROPINIROLE HYDROCHLORIDE. [Concomitant]
     Active Substance: ROPINIROLE HYDROCHLORIDE
     Route: 048
     Dates: start: 20180123, end: 20200204
  5. EDOXABAN TOSILATE HYDRATE [Concomitant]
     Active Substance: EDOXABAN TOSYLATE
     Indication: PROPHYLAXIS
     Route: 048
     Dates: end: 20190112
  6. DUODOPA [Suspect]
     Active Substance: CARBIDOPA\LEVODOPA
     Dosage: MD: 6 ML, CD: 2.8 ML/HR ? 16 HRS, ED: 1 ML/UNIT ? 5 TIMES
     Route: 050
     Dates: start: 20170914, end: 20181128
  7. WARFARIN POTASSIUM [Suspect]
     Active Substance: WARFARIN POTASSIUM
     Route: 048
     Dates: start: 20190526, end: 20191004
  8. DOPACOL [Concomitant]
     Active Substance: CARBIDOPA\LEVODOPA
     Indication: PARKINSON^S DISEASE
     Dosage: THE AMOUNT OF LEVODOPA CONVERTED TO 16-HOUR DOSE DURING DAYTIME WAS 950.
     Route: 048
     Dates: start: 200611
  9. DUODOPA [Suspect]
     Active Substance: CARBIDOPA\LEVODOPA
     Dosage: MD: 6 ML, CD: 2.8 ML/HR X 16 HR, ED: 1 ML/UNIT X2
     Route: 050
     Dates: start: 20170815, end: 20170909
  10. DUODOPA [Suspect]
     Active Substance: CARBIDOPA\LEVODOPA
     Dosage: MD: 6 ML?CD: 3 ML/HR ? 16 HRS?ED: 1.2 ML/UNIT ? 5
     Route: 050
     Dates: start: 20181215, end: 20190419
  11. DUODOPA [Suspect]
     Active Substance: CARBIDOPA\LEVODOPA
     Dosage: MD: 6 ML?CD: 2.8 ML/HR ? 16 HRS?ED: 1.2 ML/UNIT ? 5
     Route: 050
     Dates: start: 20190810, end: 20191227
  12. DUODOPA [Suspect]
     Active Substance: CARBIDOPA\LEVODOPA
     Route: 050
     Dates: start: 2020
  13. DUODOPA [Suspect]
     Active Substance: CARBIDOPA\LEVODOPA
     Dosage: MD: 6.5 ML?CD: 2.7 ML/HR ? 16 HRS?ED: 1 ML/UNIT ? 5
     Route: 050
     Dates: start: 20190601, end: 20190809
  14. DUODOPA [Suspect]
     Active Substance: CARBIDOPA\LEVODOPA
     Dosage: MD: 6.5 ML?CD: 2.8 ML/HR ? 16 HRS?ED: 1.2 ML/UNIT ? 5
     Route: 050
     Dates: start: 20191228, end: 20200204
  15. ROPINIROLE HYDROCHLORIDE. [Concomitant]
     Active Substance: ROPINIROLE HYDROCHLORIDE
     Route: 048
     Dates: start: 20200205
  16. DUODOPA [Suspect]
     Active Substance: CARBIDOPA\LEVODOPA
     Dosage: MD: 6 ML?CD: 2.8 ML/HR ? 16 HRS?ED: 1.2 ML/UNIT ? 5
     Route: 050
     Dates: start: 20190420, end: 20190531
  17. WARFARIN POTASSIUM [Suspect]
     Active Substance: WARFARIN POTASSIUM
     Indication: PROPHYLAXIS
     Route: 048
     Dates: start: 20190112, end: 20190525
  18. ROPINIROLE HYDROCHLORIDE. [Concomitant]
     Active Substance: ROPINIROLE HYDROCHLORIDE
     Indication: PARKINSON^S DISEASE
     Route: 048
     Dates: end: 20180122
  19. ROPINIROLE HYDROCHLORIDE. [Concomitant]
     Active Substance: ROPINIROLE HYDROCHLORIDE
     Route: 048
     Dates: start: 20180123, end: 20200204

REACTIONS (21)
  - Blood loss anaemia [Recovering/Resolving]
  - Device connection issue [Recovered/Resolved]
  - Device dislocation [Unknown]
  - Medical device site ulcer [Unknown]
  - Abdominal pain lower [Recovering/Resolving]
  - Device occlusion [Unknown]
  - Gastrointestinal complication associated with device [Recovered/Resolved]
  - Fracture [Unknown]
  - Device alarm issue [Unknown]
  - Dyskinesia [Recovered/Resolved]
  - Device colour issue [Unknown]
  - Device kink [Unknown]
  - Device dislocation [Recovered/Resolved]
  - Stoma site extravasation [Unknown]
  - Dyskinesia [Recovered/Resolved]
  - Pain [Unknown]
  - Weight decreased [Unknown]
  - Tibia fracture [Recovered/Resolved]
  - Fall [Unknown]
  - International normalised ratio increased [Unknown]
  - Device breakage [Unknown]

NARRATIVE: CASE EVENT DATE: 20170820
